FAERS Safety Report 10697798 (Version 1)
Quarter: 2015Q1

REPORT INFORMATION
  Report Type: Spontaneous
  Country: US (occurrence: None)
  Receive Date: 20150107
  Receipt Date: 20150107
  Transmission Date: 20150721
  Serious: Yes (Other)
  Sender: FDA-Public Use
  Company Number: None

PATIENT
  Age: 32 Year
  Sex: Male
  Weight: 72.58 kg

DRUGS (2)
  1. PRACTI-PRODUCTS [Suspect]
     Active Substance: UNSPECIFIED INGREDIENT
     Indication: DEHYDRATION
     Dosage: 500 CC?INTRAVENOUS
     Route: 042
     Dates: start: 20141203, end: 20141204
  2. PRACTI-PRODUCTS [Suspect]
     Active Substance: UNSPECIFIED INGREDIENT
     Indication: FLUID REPLACEMENT
     Dosage: 500 CC?INTRAVENOUS
     Route: 042
     Dates: start: 20141203, end: 20141204

REACTIONS (4)
  - Wrong drug administered [None]
  - Headache [None]
  - Malaise [None]
  - Gastric disorder [None]

NARRATIVE: CASE EVENT DATE: 20141204
